FAERS Safety Report 5129888-6 (Version None)
Quarter: 2006Q4

REPORT INFORMATION
  Report Type: 
  Country: None (occurrence: None)
  Receive Date: 20061013
  Receipt Date: 20060929
  Transmission Date: 20070319
  Serious: Yes (Other)
  Sender: FDA-Public Use
  Company Number: 2006SP003389

PATIENT
  Age: 53 Year
  Sex: Female
  Weight: 71 kg

DRUGS (2)
  1. PEGINTERFERON ALFA-2B W/RIBAVIRIN (S-P) (PEGYLATED INTERFERON ALFA-2B [Suspect]
     Indication: HEPATITIS C
     Dosage: 100 MCG;QW;SC
     Route: 058
     Dates: start: 20060310, end: 20060901
  2. RIBAVIRIN [Suspect]
     Indication: HEPATITIS C
     Dosage: PO
     Route: 048

REACTIONS (2)
  - ASTHENIA [None]
  - HEPATIC ENCEPHALOPATHY [None]
